FAERS Safety Report 9258162 (Version 1)
Quarter: 2013Q2

REPORT INFORMATION
  Report Type: Report from Study
  Country: DK (occurrence: DE)
  Receive Date: 20130426
  Receipt Date: 20130426
  Transmission Date: 20140414
  Serious: Yes (Hospitalization)
  Sender: FDA-Public Use
  Company Number: DE-FRI-1000044590

PATIENT
  Sex: Female

DRUGS (4)
  1. CITALOPRAM [Suspect]
     Dosage: 20 MG
     Route: 048
     Dates: start: 20120701, end: 20130129
  2. CITALOPRAM [Suspect]
     Dosage: 10 MG
     Route: 048
     Dates: start: 20130130, end: 20130205
  3. OPIPRAMOL [Suspect]
     Dosage: 75 MG
     Route: 048
     Dates: start: 20120817, end: 20130129
  4. OPIPRAMOL [Suspect]
     Dosage: 25 MG
     Route: 048
     Dates: start: 20130130, end: 20130204

REACTIONS (2)
  - Headache [Recovered/Resolved]
  - Sensation of foreign body [Recovered/Resolved]
